FAERS Safety Report 6500320-0 (Version None)
Quarter: 2009Q4

REPORT INFORMATION
  Report Type: 
  Country: None (occurrence: None)
  Receive Date: 20091216
  Receipt Date: 20091204
  Transmission Date: 20100525
  Serious: Yes (Hospitalization)
  Sender: FDA-Public Use
  Company Number: FR-CELGENEUS-056-50794-09090897

PATIENT
  Sex: Male
  Weight: 80.5 kg

DRUGS (13)
  1. VIDAZA [Suspect]
     Indication: MYELODYSPLASTIC SYNDROME
     Route: 058
     Dates: start: 20091012
  2. VIDAZA [Suspect]
     Route: 058
     Dates: start: 20090803, end: 20090807
  3. VIDAZA [Suspect]
     Route: 058
     Dates: start: 20090615
  4. NEO RECORMON [Suspect]
     Indication: MYELODYSPLASTIC SYNDROME
     Route: 058
     Dates: start: 20091012
  5. NEO RECORMON [Suspect]
     Dosage: 60000 UI/ WEEK
     Route: 058
     Dates: start: 20090804
  6. LASILIX [Concomitant]
     Indication: HYPERTENSION
     Route: 048
  7. ATENOLOL [Concomitant]
     Indication: HYPERTENSION
     Route: 048
  8. KARDEGIC [Concomitant]
     Indication: THROMBOSIS PROPHYLAXIS
     Route: 048
  9. INIPOMP [Concomitant]
     Indication: REFLUX GASTRITIS
     Route: 048
  10. LOXEN [Concomitant]
     Indication: HYPERTENSION
     Dosage: 100
     Route: 048
  11. CORDARONE [Concomitant]
     Indication: ARRHYTHMIA
     Route: 048
  12. ARIXTRA [Concomitant]
     Indication: THROMBOSIS
     Route: 048
  13. IXPRIM [Concomitant]
     Indication: PAIN
     Route: 048

REACTIONS (1)
  - SIGMOIDITIS [None]
